FAERS Safety Report 7330676-0 (Version None)
Quarter: 2011Q1

REPORT INFORMATION
  Report Type: 
  Country: None (occurrence: None)
  Receive Date: 20110225
  Receipt Date: 20110225
  Transmission Date: 20110831
  Serious: No
  Sender: FDA-Public Use
  Company Number: None

PATIENT
  Sex: Female
  Weight: 78.6 kg

DRUGS (2)
  1. IMITREX [Suspect]
     Indication: HEADACHE
     Dosage: 0.5 ML ONCE SUBCUTANEOUS
     Route: 058
     Dates: start: 20110119
  2. YAZ [Suspect]

REACTIONS (2)
  - CONDITION AGGRAVATED [None]
  - HEADACHE [None]
